FAERS Safety Report 23952748 (Version 1)
Quarter: 2024Q2

REPORT INFORMATION
  Report Type: Spontaneous
  Country: FR (occurrence: FR)
  Receive Date: 20240607
  Receipt Date: 20240607
  Transmission Date: 20240716
  Serious: Yes (Other)
  Sender: FDA-Public Use
  Company Number: FR-009507513-2405FRA006735

PATIENT
  Age: 37 Year
  Sex: Female
  Weight: 94 kg

DRUGS (1)
  1. DELSTRIGO [Suspect]
     Active Substance: DORAVIRINE\LAMIVUDINE\TENOFOVIR DISOPROXIL FUMARATE
     Indication: HIV infection
     Dosage: 100/300/245 MG, QD
     Route: 048
     Dates: start: 20230322, end: 20240314

REACTIONS (4)
  - Viral mutation identified [Unknown]
  - Pathogen resistance [Unknown]
  - Virologic failure [Unknown]
  - Treatment noncompliance [Unknown]

NARRATIVE: CASE EVENT DATE: 20240116
